FAERS Safety Report 9851159 (Version 1)
Quarter: 2014Q1

REPORT INFORMATION
  Report Type: Spontaneous
  Country: US (occurrence: US)
  Receive Date: 20140128
  Receipt Date: 20140128
  Transmission Date: 20141002
  Serious: No
  Sender: FDA-Public Use
  Company Number: US-SANOFI-AVENTIS-2013SA029287

PATIENT
  Age: 81 Year
  Sex: Male

DRUGS (4)
  1. LASIX [Suspect]
     Dates: end: 20120508
  2. METOPROLOL [Suspect]
     Dates: end: 20120508
  3. DILTIAZEM [Suspect]
  4. CLONIDINE [Suspect]
     Dates: end: 20120508

REACTIONS (2)
  - Hypersomnia [Recovered/Resolved]
  - Fatigue [Recovered/Resolved]
